FAERS Safety Report 6615475-7 (Version None)
Quarter: 2010Q1

REPORT INFORMATION
  Report Type: 
  Country: None (occurrence: None)
  Receive Date: 20100305
  Receipt Date: 20100219
  Transmission Date: 20100710
  Serious: Yes (Hospitalization)
  Sender: FDA-Public Use
  Company Number: US-ROCHE-617154

PATIENT
  Sex: Male

DRUGS (16)
  1. PEG-INTERFERON ALFA 2A (RO 25-8310) [Suspect]
     Indication: HEPATITIS C
     Route: 058
     Dates: start: 20081217, end: 20090211
  2. PEG-INTERFERON ALFA 2A (RO 25-8310) [Suspect]
     Route: 058
     Dates: start: 20090225
  3. RIBAVIRIN [Suspect]
     Indication: HEPATITIS C
     Dosage: 600 MG EVERY AM 400 MG EVERY PM
     Route: 048
     Dates: start: 20081217, end: 20090212
  4. RIBAVIRIN [Suspect]
     Dosage: 400MG EVERY AM 200 MG EVERY PM
     Route: 048
     Dates: start: 20090213, end: 20090217
  5. RIBAVIRIN [Suspect]
     Route: 048
     Dates: start: 20090224, end: 20090224
  6. RIBAVIRIN [Suspect]
     Route: 048
     Dates: start: 20090225
  7. VX-950 [Suspect]
     Indication: HEPATITIS C
     Route: 048
     Dates: start: 20081217, end: 20090217
  8. ALEVE (CAPLET) [Concomitant]
     Indication: HEADACHE
     Dates: start: 20081221
  9. ROZEREM [Concomitant]
     Indication: INSOMNIA
     Dates: start: 20090113
  10. BENADRYL [Concomitant]
     Indication: RASH
     Dates: start: 20090210
  11. AMBIEN [Concomitant]
     Indication: INSOMNIA
     Dates: start: 20090113
  12. ZOLOFT [Concomitant]
     Indication: MOOD SWINGS
     Dates: start: 20090213
  13. XANAX [Concomitant]
     Indication: INSOMNIA
     Dates: start: 20090218, end: 20090220
  14. NORCO [Concomitant]
  15. HYDROCORTISONE CREAM [Concomitant]
     Indication: RASH
     Dates: start: 20090218, end: 20090218
  16. ATARAX [Concomitant]
     Indication: RASH
     Dates: start: 20090219, end: 20090220

REACTIONS (4)
  - ANAEMIA [None]
  - COGNITIVE DISORDER [None]
  - DEHYDRATION [None]
  - DYSPNOEA [None]
